FAERS Safety Report 7701178-4 (Version None)
Quarter: 2011Q3

REPORT INFORMATION
  Report Type: 
  Country: None (occurrence: None)
  Receive Date: 20110817
  Receipt Date: 20110804
  Transmission Date: 20111222
  Serious: Yes (Other)
  Sender: FDA-Public Use
  Company Number: TPA2011A03541

PATIENT
  Age: 65 Year
  Sex: Male
  Weight: 74.3899 kg

DRUGS (42)
  1. ACTOS [Suspect]
     Indication: TYPE 2 DIABETES MELLITUS
     Dosage: 30 MG TO 45 MG
     Dates: start: 20060601, end: 20110622
  2. ERGO(ERGOMETRINE MALEATE) [Concomitant]
  3. PLAVIX [Concomitant]
  4. COQ1O(UBIDECARENONE) [Concomitant]
  5. GLUCOSAMINE(GLUCOSAMINE) [Concomitant]
  6. CYANOCOBALAMIN [Concomitant]
  7. FISH OIL(FISH OIL) [Concomitant]
  8. SELENIUM(SELENIUM) [Concomitant]
  9. METFORMIN HCL [Concomitant]
  10. VIT C(ASCORBIC ACID) [Concomitant]
  11. B6(PYRIDOXINE HYDROCHLORIDE) [Concomitant]
  12. ALPHA LIPOIC ACID(THIOCTIC ACID) [Concomitant]
  13. CA WITH D, MAGNESIUM(MAGNESIUM, CALCIUM, VITAMIN NOS) [Concomitant]
  14. CRESTOR [Concomitant]
  15. IMDUR [Concomitant]
  16. DOCUSATE(DOCUSATE) [Concomitant]
  17. FOLIC ACID [Concomitant]
  18. CLARITIN(GLICLAZIDE) [Concomitant]
  19. NAPROXEN [Concomitant]
  20. PROTONIX [Concomitant]
  21. PRILOSEC [Concomitant]
  22. COUMADIN [Concomitant]
  23. ZETIA [Concomitant]
  24. ASPIRIN [Concomitant]
  25. MILK THISTLE(HERBAL PREPARATION) [Concomitant]
  26. JANUVIA [Concomitant]
  27. AMARYL [Concomitant]
  28. HYDROCHLOROTHIAZIDE [Concomitant]
  29. FLOMAX [Concomitant]
  30. SYNTHROID [Concomitant]
  31. GLUCOPHAGE XR(METFORMIN HYDROCHLORIDE) [Concomitant]
  32. POTASSIUM CHLORIDE [Concomitant]
  33. ALTACE [Concomitant]
  34. HYOSCYAMINE(HYOSCYAMINE) [Concomitant]
  35. CINNAMON(CINNAMOMUM VERUM) [Concomitant]
  36. ALLEGRA [Concomitant]
  37. GLYBURIDE [Concomitant]
  38. COREG [Concomitant]
  39. VIT E(TOCOPHEROL) [Concomitant]
  40. ISOSORBIDE DINITRATE [Concomitant]
  41. ZINC(ZINC) [Concomitant]
  42. LEUTIN{XANTOFYL) [Concomitant]

REACTIONS (6)
  - FEELING ABNORMAL [None]
  - BLADDER TRANSITIONAL CELL CARCINOMA [None]
  - HAEMATURIA [None]
  - NEPHROLITHIASIS [None]
  - CYSTITIS NONINFECTIVE [None]
  - HEART RATE INCREASED [None]
